FAERS Safety Report 9463560 (Version 1)
Quarter: 2013Q3

REPORT INFORMATION
  Report Type: Spontaneous
  Country: FR (occurrence: FR)
  Receive Date: 20130819
  Receipt Date: 20130819
  Transmission Date: 20140515
  Serious: Yes (Death, Other)
  Sender: FDA-Public Use
  Company Number: FR-BRISTOL-MYERS SQUIBB COMPANY-19185859

PATIENT
  Age: 62 Year
  Sex: Female

DRUGS (11)
  1. TAXOL [Suspect]
     Dosage: TILL 28-MAY-2013
     Route: 042
     Dates: start: 20130521
  2. HERCEPTIN [Suspect]
     Dosage: RECEIVED ON 21MAY2013;AT A DOSE OF 400 MG
     Route: 042
     Dates: start: 2010
  3. DEXCHLORPHENIRAMINE [Suspect]
     Route: 042
     Dates: start: 20130528
  4. METHYLPREDNISOLONE [Suspect]
     Route: 042
     Dates: start: 20130528
  5. GRANISETRON [Suspect]
     Route: 042
     Dates: start: 20130528
  6. PROFENID [Concomitant]
  7. LYRICA [Concomitant]
  8. INEXIUM [Concomitant]
  9. SKENAN [Concomitant]
  10. ACTISKENAN [Concomitant]
  11. LOVENOX [Concomitant]

REACTIONS (2)
  - Encephalopathy [Fatal]
  - Renal failure [Recovering/Resolving]
